FAERS Safety Report 5115268-6 (Version None)
Quarter: 2006Q3

REPORT INFORMATION
  Report Type: 
  Country: None (occurrence: None)
  Receive Date: 20060926
  Receipt Date: 20060921
  Transmission Date: 20061208
  Serious: Yes (Hospitalization)
  Sender: FDA-Public Use
  Company Number: US-GLAXOSMITHKLINE-A0621010A

PATIENT
  Age: 77 Year
  Sex: Male

DRUGS (3)
  1. AVANDIA [Suspect]
     Dosage: 4MG TWICE PER DAY
     Route: 048
  2. GLYBURIDE [Concomitant]
  3. METFORMIN [Concomitant]

REACTIONS (4)
  - ABDOMINAL DISTENSION [None]
  - HEPATIC ENZYME INCREASED [None]
  - INTRA-ABDOMINAL HAEMORRHAGE [None]
  - OEDEMA PERIPHERAL [None]
